FAERS Safety Report 8778289 (Version 1)
Quarter: 2012Q4

REPORT INFORMATION
  Report Type: 
  Country: GR (occurrence: GR)
  Receive Date: 20120911
  Receipt Date: 20120911
  Transmission Date: 20130627
  Serious: Yes (Death)
  Sender: FDA-Public Use
  Company Number: GR-ACCORD-014626

PATIENT
  Age: 78 Year
  Sex: Male

DRUGS (1)
  1. QUETIAPINE FUMARATE [Suspect]
     Indication: DELIRIUM
     Dosage: quetiapine was started at 25 mg twice daily and the dose was progressively titrated to 50 mg 12 hrly

REACTIONS (4)
  - Pancreatitis acute [Fatal]
  - Renal failure acute [Fatal]
  - Acute respiratory distress syndrome [Fatal]
  - Off label use [Unknown]
